FAERS Safety Report 7065653-0 (Version None)
Quarter: 2010Q4

REPORT INFORMATION
  Report Type: 
  Country: None (occurrence: None)
  Receive Date: 20101022
  Receipt Date: 20101022
  Transmission Date: 20110411
  Serious: Yes (Death)
  Sender: FDA-Public Use
  Company Number: None

PATIENT
  Sex: Female
  Weight: 81.6475 kg

DRUGS (1)
  1. LYRICA [Suspect]
     Indication: FIBROMYALGIA
     Dosage: 25 MG X 2 AM MOUTH 25 MG X 2 PM MOUTH 2 TO 3 MTHS
     Route: 048

REACTIONS (2)
  - BRAIN STEM HAEMORRHAGE [None]
  - HAEMORRHAGE INTRACRANIAL [None]
